FAERS Safety Report 5922846-0 (Version None)
Quarter: 2008Q4

REPORT INFORMATION
  Report Type: 
  Country: None (occurrence: None)
  Receive Date: 20081017
  Receipt Date: 20081010
  Transmission Date: 20090506
  Serious: Yes (Hospitalization, Other)
  Sender: FDA-Public Use
  Company Number: PHNU2008DE01591

PATIENT
  Sex: Female

DRUGS (9)
  1. GLEEVEC [Suspect]
     Indication: CHRONIC MYELOID LEUKAEMIA
     Dosage: 400 MG DAILY
     Route: 048
     Dates: start: 20060501
  2. GLEEVEC [Suspect]
     Indication: CHROMOSOME ANALYSIS ABNORMAL
  3. GODAMED [Concomitant]
     Dosage: 100 MG
  4. CONCOR COR [Concomitant]
     Dosage: 2.5 MG
  5. SPIRONOLACTONE [Concomitant]
     Dosage: 50 MG
  6. TORSEMIDE [Concomitant]
     Dosage: 10 MG
  7. DIOVAN [Concomitant]
     Dosage: 80 MG
  8. PANTOZOL [Concomitant]
     Dosage: 40 MG
  9. L-THYROXIN ^HENNING BERLIN^ [Concomitant]
     Dosage: 100 UG

REACTIONS (20)
  - ALOPECIA [None]
  - ASTHENIA [None]
  - ATRIAL FIBRILLATION [None]
  - CARDIAC FAILURE [None]
  - CARDIAC PACEMAKER INSERTION [None]
  - CARDIOVERSION [None]
  - CATHETERISATION CARDIAC [None]
  - CONSTIPATION [None]
  - DECREASED APPETITE [None]
  - DEPRESSED MOOD [None]
  - DYSPNOEA [None]
  - EYE IRRITATION [None]
  - FATIGUE [None]
  - FEELING COLD [None]
  - GAIT DISTURBANCE [None]
  - HYPOTENSION [None]
  - MADAROSIS [None]
  - PARAESTHESIA [None]
  - PRURITUS [None]
  - SKIN EROSION [None]
